FAERS Safety Report 6102336-5 (Version None)
Quarter: 2009Q1

REPORT INFORMATION
  Report Type: 
  Country: None (occurrence: None)
  Receive Date: 20090304
  Receipt Date: 20090303
  Transmission Date: 20090719
  Serious: Yes (Other)
  Sender: FDA-Public Use
  Company Number: US-BAYER-200813687BCC

PATIENT
  Age: 56 Year
  Sex: Male
  Weight: 118 kg

DRUGS (10)
  1. ALKA-SELTZER LEMON-LIME [Suspect]
     Indication: DYSPEPSIA
     Dosage: AS USED: 3 DF  UNIT DOSE: 3 DF
     Route: 048
     Dates: start: 20071101
  2. ALKA-SELTZER LEMON-LIME [Suspect]
     Dosage: AS USED: 3 DF  UNIT DOSE: 3 DF
     Route: 048
  3. ASPIRIN [Suspect]
     Indication: DRUG USE FOR UNKNOWN INDICATION
     Dosage: TOTAL DAILY DOSE: 81 MG  UNIT DOSE: 81 MG
     Route: 048
  4. ACCUPRIL [Concomitant]
  5. COREG [Concomitant]
  6. METFORMIN [Concomitant]
  7. ACTOS [Concomitant]
  8. TRICOR [Concomitant]
  9. VYTORIN [Concomitant]
  10. GLYBURIDE [Concomitant]

REACTIONS (2)
  - DEHYDRATION [None]
  - VERTIGO [None]
